FAERS Safety Report 24605779 (Version 1)
Quarter: 2024Q4

REPORT INFORMATION
  Report Type: Spontaneous
  Country: US (occurrence: US)
  Receive Date: 20241111
  Receipt Date: 20241111
  Transmission Date: 20250115
  Serious: No
  Sender: BRISTOL-MYERS SQUIBB COMPANY
  Company Number: US-MLMSERVICE-20241030-PI241986-00329-1

PATIENT
  Age: 10 Year
  Sex: Female

DRUGS (8)
  1. AZTREONAM [Suspect]
     Active Substance: AZTREONAM
     Indication: Infective pulmonary exacerbation of cystic fibrosis
     Dosage: 75 MG/KG/DOSE IV EVERY 6 H (INFUSED OVER 30 MIN)
     Route: 042
     Dates: start: 202312
  2. AVIBACTAM SODIUM\CEFTAZIDIME [Suspect]
     Active Substance: AVIBACTAM SODIUM\CEFTAZIDIME
     Indication: Infective pulmonary exacerbation of cystic fibrosis
     Dosage: 50 MG/KG/DOSE IV EVERY 8 H (INFUSED OVER 2 H)
     Route: 042
     Dates: start: 202312
  3. VANCOMYCIN [Suspect]
     Active Substance: VANCOMYCIN
     Indication: Infective pulmonary exacerbation of cystic fibrosis
     Dosage: 21 MG/KG/DOSE IV EVERY 6 H (INFUSED OVER 2 H)
     Route: 042
     Dates: start: 202312
  4. ALBUTEROL [Concomitant]
     Active Substance: ALBUTEROL
     Indication: Respiratory therapy
     Dosage: PER DAY
  5. DORNASE ALFA [Concomitant]
     Active Substance: DORNASE ALFA
     Indication: Respiratory therapy
  6. ACETYLCYSTEINE [Concomitant]
     Active Substance: ACETYLCYSTEINE
     Indication: Respiratory therapy
     Dosage: 10% NEBULIZED SOLUTION
     Route: 045
  7. LINEZOLID [Concomitant]
     Active Substance: LINEZOLID
     Indication: Infective pulmonary exacerbation of cystic fibrosis
     Route: 048
     Dates: start: 202312
  8. MINOCYCLINE [Concomitant]
     Active Substance: MINOCYCLINE HYDROCHLORIDE
     Indication: Infective pulmonary exacerbation of cystic fibrosis
     Route: 048
     Dates: start: 202312

REACTIONS (1)
  - Transaminases increased [Unknown]

NARRATIVE: CASE EVENT DATE: 20231201
